FAERS Safety Report 7728372-0 (Version None)
Quarter: 2011Q3

REPORT INFORMATION
  Report Type: 
  Country: None (occurrence: None)
  Receive Date: 20110905
  Receipt Date: 20110902
  Transmission Date: 20111222
  Serious: Yes (Death, Hospitalization)
  Sender: FDA-Public Use
  Company Number: PHHY2011NL65465

PATIENT
  Sex: Female
  Weight: 75 kg

DRUGS (4)
  1. OXYCODONE HCL [Concomitant]
  2. ZOMETA [Suspect]
     Indication: METASTASES TO BONE
     Dosage: 4 MG/ 5 ML
     Dates: start: 20110610
  3. ACETAMINOPHEN [Concomitant]
  4. OXYCONTIN [Concomitant]

REACTIONS (5)
  - C-REACTIVE PROTEIN INCREASED [None]
  - ILEUS [None]
  - ATRIAL FIBRILLATION [None]
  - DEATH [None]
  - ANAEMIA [None]
